FAERS Safety Report 15424579 (Version 2)
Quarter: 2018Q4

REPORT INFORMATION
  Report Type: Spontaneous
  Country: NZ (occurrence: NZ)
  Receive Date: 20180925
  Receipt Date: 20181128
  Transmission Date: 20190204
  Serious: Yes (Hospitalization, Other)
  Sender: FDA-Public Use
  Company Number: NZ-009507513-1809NZL008200

PATIENT
  Age: 54 Year
  Sex: Female

DRUGS (5)
  1. OMEPRAZOLE. [Concomitant]
     Active Substance: OMEPRAZOLE
     Indication: GASTROOESOPHAGEAL REFLUX DISEASE
     Dosage: 40 MILLIGRAM, PRN
     Route: 048
  2. DEXAMETHASONE. [Suspect]
     Active Substance: DEXAMETHASONE
     Dosage: LONG TERM, UNK
  3. PEMBROLIZUMAB. [Suspect]
     Active Substance: PEMBROLIZUMAB
     Indication: METASTATIC MALIGNANT MELANOMA
     Dosage: 4 WEEKLY INFUSION, 20 CYCLES
     Route: 042
     Dates: start: 20161017, end: 20171120
  4. MORPHINE [Concomitant]
     Active Substance: MORPHINE
     Indication: TUMOUR PAIN
     Dosage: 10 MILLIGRAM AS NEEDED
     Route: 048
  5. IBUPROFEN. [Suspect]
     Active Substance: IBUPROFEN
     Indication: TUMOUR PAIN
     Dosage: 400 MILLIGRAM AS NEEDED
     Route: 048
     Dates: start: 201710, end: 20171123

REACTIONS (7)
  - Tubulointerstitial nephritis [Recovering/Resolving]
  - Malignant neoplasm progression [Unknown]
  - Acute kidney injury [Recovering/Resolving]
  - Adrenal suppression [Unknown]
  - Inappropriate schedule of product administration [Unknown]
  - Immune-mediated adverse reaction [Unknown]
  - Endocrine disorder [Unknown]

NARRATIVE: CASE EVENT DATE: 20161017
